FAERS Safety Report 9255339 (Version 1)
Quarter: 2013Q2

REPORT INFORMATION
  Report Type: Spontaneous
  Country: US (occurrence: None)
  Receive Date: 20130423
  Receipt Date: 20130423
  Transmission Date: 20140414
  Serious: Yes (Hospitalization)
  Sender: FDA-Public Use
  Company Number: None

PATIENT
  Age: 60 Year
  Sex: Male
  Weight: 90.4 kg

DRUGS (1)
  1. IOHEXOL [Suspect]
     Indication: SCAN WITH CONTRAST
     Route: 042
     Dates: start: 20130226, end: 20130226

REACTIONS (4)
  - Infusion site extravasation [None]
  - Infusion site swelling [None]
  - Infusion site pain [None]
  - Infusion site erythema [None]
